FAERS Safety Report 16048785 (Version 2)
Quarter: 2019Q2

REPORT INFORMATION
  Report Type: Report from Study
  Country: US (occurrence: US)
  Receive Date: 20190307
  Receipt Date: 20190507
  Transmission Date: 20190711
  Serious: No
  Sender: FDA-Public Use
  Company Number: US-SA-2019SA063784

PATIENT
  Age: 50 Year
  Sex: Male

DRUGS (2)
  1. DUPILUMAB [Suspect]
     Active Substance: DUPILUMAB
     Indication: ASTHMA
     Dosage: 300 MG, QOW
     Route: 058
     Dates: start: 2019
  2. DUPILUMAB [Suspect]
     Active Substance: DUPILUMAB
     Indication: DERMATITIS ATOPIC
     Dosage: 600 MG, 1X
     Route: 058
     Dates: start: 20190303, end: 20190303

REACTIONS (5)
  - Dizziness [Unknown]
  - Eye pruritus [Not Recovered/Not Resolved]
  - Dry mouth [Unknown]
  - Lacrimation increased [Not Recovered/Not Resolved]
  - Cold sweat [Unknown]

NARRATIVE: CASE EVENT DATE: 201903
